FAERS Safety Report 6775754-X (Version None)
Quarter: 2010Q2

REPORT INFORMATION
  Report Type: 
  Country: None (occurrence: None)
  Receive Date: 20100617
  Receipt Date: 20100607
  Transmission Date: 20101027
  Serious: Yes (Other)
  Sender: FDA-Public Use
  Company Number: PHHY2010US36212

PATIENT
  Sex: Female

DRUGS (8)
  1. ZOMETA [Suspect]
     Dosage: UNK
  2. ACTONEL [Suspect]
     Dosage: UNK
  3. AMIODARONE [Suspect]
     Dosage: 200 MG, UNK
  4. LIPITOR [Concomitant]
     Dosage: 10 MG, UNK
  5. HYZAAR [Concomitant]
     Dosage: UNK
  6. ASPIRIN [Concomitant]
     Dosage: UNK
  7. FISH OIL [Concomitant]
     Dosage: UNK
  8. CALCIUM CARBONATE [Concomitant]
     Dosage: UNK

REACTIONS (8)
  - BACK DISORDER [None]
  - BURNING SENSATION [None]
  - ERYTHEMA [None]
  - FEELING ABNORMAL [None]
  - GAIT DISTURBANCE [None]
  - MOBILITY DECREASED [None]
  - PHOTOSENSITIVITY REACTION [None]
  - RASH [None]
